FAERS Safety Report 6570365-3 (Version None)
Quarter: 2010Q1

REPORT INFORMATION
  Report Type: 
  Country: None (occurrence: None)
  Receive Date: 20100204
  Receipt Date: 20100125
  Transmission Date: 20100710
  Serious: Yes (Hospitalization, Disabling)
  Sender: FDA-Public Use
  Company Number: US-MERCK-1001USA01671

PATIENT
  Age: 82 Year
  Sex: Female

DRUGS (7)
  1. FOSAMAX [Suspect]
     Indication: OSTEOPOROSIS
     Route: 048
     Dates: start: 20090101, end: 20090101
  2. FOSAMAX [Concomitant]
     Route: 048
     Dates: end: 20090101
  3. FENTANYL [Concomitant]
     Route: 065
  4. TEMAZEPAM [Concomitant]
     Route: 065
  5. HYDROCODONE [Concomitant]
     Route: 065
  6. MAXZIDE [Concomitant]
     Route: 065
  7. VITAMIN D (UNSPECIFIED) [Concomitant]
     Route: 065

REACTIONS (5)
  - DIZZINESS [None]
  - FALL [None]
  - FRACTURE [None]
  - RIB FRACTURE [None]
  - WRIST FRACTURE [None]
